FAERS Safety Report 19042615 (Version 1)
Quarter: 2021Q1

REPORT INFORMATION
  Report Type: Spontaneous
  Country: US (occurrence: US)
  Receive Date: 20210323
  Receipt Date: 20210323
  Transmission Date: 20210420
  Serious: No
  Sender: FDA-Public Use
  Company Number: US-DRREDDYS-USA/USA/21/0132478

PATIENT
  Age: 51 Year
  Sex: Female
  Weight: 108.86 kg

DRUGS (2)
  1. TACROLIMUS CAPSULES [Suspect]
     Active Substance: TACROLIMUS
     Dosage: SHE IS BEING CHANGED TO 9 CAPSULES IN THE MORNING AND 8 CAPSULES IN THE EVENING.
     Route: 048
     Dates: start: 20021021
  2. TACROLIMUS CAPSULES [Suspect]
     Active Substance: TACROLIMUS
     Indication: HEART TRANSPLANT
     Dosage: THE LAST BOTTLE ON THE DOSE OF 4 CAPSULES IN THE MORNING AND 8 IN THE EVENING
     Route: 048
     Dates: start: 20021021

REACTIONS (2)
  - Product dose omission issue [Unknown]
  - Product quality issue [Unknown]
